FAERS Safety Report 18906708 (Version 3)
Quarter: 2024Q3

REPORT INFORMATION
  Report Type: Report from Study
  Country: IT (occurrence: IT)
  Receive Date: 20210218
  Receipt Date: 20240903
  Transmission Date: 20241017
  Serious: Yes (Hospitalization, Other)
  Sender: ROCHE
  Company Number: IT-ROCHE-2769551

PATIENT

DRUGS (1)
  1. OCRELIZUMAB [Suspect]
     Active Substance: OCRELIZUMAB
     Indication: Multiple sclerosis
     Route: 042

REACTIONS (11)
  - COVID-19 [Unknown]
  - Upper respiratory tract infection [Unknown]
  - Urinary tract infection [Unknown]
  - Appendicectomy [Unknown]
  - Hypogammaglobulinaemia [Unknown]
  - Infusion related reaction [Unknown]
  - Colon cancer [Unknown]
  - Pneumonia [Unknown]
  - Herpes simplex reactivation [Unknown]
  - Varicella zoster virus infection [Unknown]
  - Neoplasm [Unknown]
